FAERS Safety Report 9727851 (Version 5)
Quarter: 2015Q1

REPORT INFORMATION
  Report Type: Spontaneous
  Country: DE (occurrence: DE)
  Receive Date: 20131204
  Receipt Date: 20150112
  Transmission Date: 20150721
  Serious: Yes (Congenital Anomaly)
  Sender: FDA-Public Use
  Company Number: DE-BIOGENIDEC-2013BI115308

PATIENT
  Sex: Female
  Weight: 3 kg

DRUGS (2)
  1. VALPROATE [Concomitant]
     Active Substance: VALPROATE SODIUM
     Route: 064
  2. TYSABRI [Suspect]
     Active Substance: NATALIZUMAB
     Indication: MATERNAL EXPOSURE TIMING UNSPECIFIED
     Route: 064

REACTIONS (6)
  - White blood cell count increased [Recovered/Resolved]
  - Atrioventricular septal defect [Unknown]
  - Haemoglobin decreased [Recovered/Resolved]
  - Platelet count decreased [Recovered/Resolved]
  - Coloboma [Unknown]
  - Red blood cell count decreased [Recovered/Resolved]
